FAERS Safety Report 17517249 (Version 1)
Quarter: 2020Q1

REPORT INFORMATION
  Report Type: Report from Study
  Country: CA (occurrence: CA)
  Receive Date: 20200309
  Receipt Date: 20200309
  Transmission Date: 20200409
  Serious: Yes (Other)
  Sender: FDA-Public Use
  Company Number: CA-BEH-2020113924

PATIENT
  Age: 49 Year
  Sex: Female

DRUGS (6)
  1. BERINERT [Suspect]
     Active Substance: HUMAN C1-ESTERASE INHIBITOR
     Indication: PROPHYLAXIS
     Dosage: UNK
     Route: 065
     Dates: start: 202001, end: 202001
  2. BERINERT [Suspect]
     Active Substance: HUMAN C1-ESTERASE INHIBITOR
     Indication: PROPHYLAXIS
     Dosage: UNK
     Route: 065
     Dates: start: 202001, end: 202001
  3. BERINERT [Suspect]
     Active Substance: HUMAN C1-ESTERASE INHIBITOR
     Indication: HEREDITARY ANGIOEDEMA WITH C1 ESTERASE INHIBITOR DEFICIENCY
     Dosage: 1500 INTERNATIONAL UNIT, BIW
     Route: 058
     Dates: start: 20191007
  4. SYNTHROID [Concomitant]
     Active Substance: LEVOTHYROXINE SODIUM
     Indication: BLOOD THYROID STIMULATING HORMONE INCREASED
     Dosage: 75 MICROGRAM, QD
     Route: 048
  5. ESTROGEN [Concomitant]
     Active Substance: ESTROGENS
     Dosage: 2 MILLIGRAM
  6. BERINERT [Suspect]
     Active Substance: HUMAN C1-ESTERASE INHIBITOR
     Indication: HEREDITARY ANGIOEDEMA WITH C1 ESTERASE INHIBITOR DEFICIENCY
     Dosage: 1500 INTERNATIONAL UNIT, BIW
     Route: 058
     Dates: start: 20191007

REACTIONS (13)
  - Hereditary angioedema [Recovered/Resolved]
  - Product quality issue [Unknown]
  - Product preparation issue [Unknown]
  - Product use in unapproved indication [Unknown]
  - Extra dose administered [Unknown]
  - Product storage error [Unknown]
  - No adverse event [Unknown]
  - Incorrect route of product administration [Unknown]
  - Drug ineffective [Unknown]
  - Injection site pain [Recovered/Resolved with Sequelae]
  - Blood thyroid stimulating hormone increased [Unknown]
  - Hereditary angioedema [Unknown]
  - Device issue [Unknown]

NARRATIVE: CASE EVENT DATE: 202001
